FAERS Safety Report 21938042 (Version 1)
Quarter: 2023Q1

REPORT INFORMATION
  Report Type: Report from Study
  Country: US (occurrence: US)
  Receive Date: 20230201
  Receipt Date: 20230201
  Transmission Date: 20230418
  Serious: No
  Sender: FDA-Public Use
  Company Number: US-INCYTE CORPORATION-2021IN007219

PATIENT

DRUGS (3)
  1. PEMIGATINIB [Suspect]
     Active Substance: PEMIGATINIB
     Indication: Cholangiocarcinoma
     Dosage: 9 MILLIGRAM
     Route: 048
     Dates: start: 20210730, end: 20210730
  2. PEMIGATINIB [Suspect]
     Active Substance: PEMIGATINIB
     Dosage: 9 MILLIGRAM
     Route: 048
     Dates: start: 20210730
  3. PEMIGATINIB [Suspect]
     Active Substance: PEMIGATINIB
     Dosage: 9 MILLIGRAM (2 WEEKS ON AND 1 WEEK OFF)
     Route: 048
     Dates: start: 20210730, end: 20210816

REACTIONS (10)
  - Vomiting [Unknown]
  - Oral mucosal blistering [Unknown]
  - Product dose omission issue [Unknown]
  - Nausea [Unknown]
  - Fatigue [Unknown]
  - Constipation [Unknown]
  - Pain [Unknown]
  - Dyschezia [Unknown]
  - Ocular hyperaemia [Unknown]
  - Abdominal discomfort [Unknown]
